FAERS Safety Report 25418253 (Version 1)
Quarter: 2025Q2

REPORT INFORMATION
  Report Type: Spontaneous
  Country: US (occurrence: None)
  Receive Date: 20250606
  Receipt Date: 20250606
  Transmission Date: 20250717
  Serious: No
  Sender: FDA-CTU
  Company Number: None

PATIENT
  Age: 69 Year
  Sex: Male

DRUGS (1)
  1. FLUORESCEIN SODIUM [Suspect]
     Active Substance: FLUORESCEIN SODIUM
     Indication: Angiogram
     Route: 042
     Dates: start: 20250424, end: 20250424

REACTIONS (6)
  - Pruritus [None]
  - Burning sensation [None]
  - Hyperhidrosis [None]
  - Flushing [None]
  - Rash [None]
  - Hypotension [None]

NARRATIVE: CASE EVENT DATE: 20250424
